FAERS Safety Report 5205077-1 (Version None)
Quarter: 2007Q1

REPORT INFORMATION
  Report Type: 
  Country: None (occurrence: None)
  Receive Date: 20070110
  Receipt Date: 20061024
  Transmission Date: 20070707
  Serious: No
  Sender: FDA-Public Use
  Company Number: US-BRISTOL-MYERS SQUIBB COMPANY-13550660

PATIENT
  Age: 84 Year
  Sex: Female

DRUGS (5)
  1. ABILIFY [Suspect]
     Indication: GENERALISED ANXIETY DISORDER
     Route: 048
     Dates: start: 20061012
  2. REMERON [Concomitant]
  3. CLONIDINE [Concomitant]
  4. ENTERIC ASPIRIN [Concomitant]
  5. ASCORBIC ACID [Concomitant]

REACTIONS (1)
  - VISION BLURRED [None]
